FAERS Safety Report 8478423-3 (Version None)
Quarter: 2012Q2

REPORT INFORMATION
  Report Type: 
  Country: None (occurrence: None)
  Receive Date: 20120629
  Receipt Date: 20120620
  Transmission Date: 20120825
  Serious: Yes (Other)
  Sender: FDA-Public Use
  Company Number: FR-JNJFOC-20120611830

PATIENT
  Age: 40 Year
  Sex: Female

DRUGS (2)
  1. OXYCODONE HCL [Concomitant]
     Indication: PRODUCT USED FOR UNKNOWN INDICATION
     Route: 065
  2. DURAGESIC-100 [Suspect]
     Indication: FIBROMYALGIA
     Route: 062

REACTIONS (3)
  - MATERNAL EXPOSURE DURING PREGNANCY [None]
  - DEPENDENCE [None]
  - DRUG SCREEN NEGATIVE [None]
